FAERS Safety Report 12730066 (Version 1)
Quarter: 2016Q3

REPORT INFORMATION
  Report Type: Spontaneous
  Country: US (occurrence: US)
  Receive Date: 20160909
  Receipt Date: 20160909
  Transmission Date: 20161109
  Serious: Yes (Hospitalization)
  Sender: FDA-Public Use
  Company Number: US-CELGENEUS-USA-2016091226

PATIENT
  Age: 88 Year
  Sex: Female
  Weight: 66.28 kg

DRUGS (2)
  1. REVLIMID [Suspect]
     Active Substance: LENALIDOMIDE
     Indication: PLASMA CELL MYELOMA
     Dosage: 10 MILLIGRAM
     Route: 048
     Dates: start: 20160809, end: 20160829
  2. DEXAMETHASONE. [Concomitant]
     Active Substance: DEXAMETHASONE
     Indication: PRODUCT USED FOR UNKNOWN INDICATION
     Route: 065

REACTIONS (8)
  - Full blood count decreased [Unknown]
  - Restlessness [Unknown]
  - Muscle spasms [Unknown]
  - Confusional state [Unknown]
  - Insomnia [Unknown]
  - Increased appetite [Unknown]
  - Dyskinesia [Unknown]
  - Irritability [Unknown]

NARRATIVE: CASE EVENT DATE: 2016
